FAERS Safety Report 9146065 (Version 1)
Quarter: 2013Q1

REPORT INFORMATION
  Report Type: Spontaneous
  Country: US (occurrence: None)
  Receive Date: 20130207
  Receipt Date: 20130207
  Transmission Date: 20140127
  Serious: Yes (Death)
  Sender: FDA-Public Use
  Company Number: 2013010203

PATIENT
  Age: 23 Year
  Sex: Male

DRUGS (5)
  1. ZOLPIDEM (ZOLPIDEM) [Suspect]
  2. ETHANOL [Suspect]
  3. OLANZAPINE (OLANZAPINE) [Suspect]
  4. LORAZEPAM (LORAZEPAM) [Suspect]
  5. DROPERIDOL [Suspect]

REACTIONS (1)
  - Drug abuse [None]
